FAERS Safety Report 10475818 (Version 2)
Quarter: 2015Q3

REPORT INFORMATION
  Report Type: Spontaneous
  Country: US (occurrence: US)
  Receive Date: 20140925
  Receipt Date: 20150720
  Transmission Date: 20151125
  Serious: No
  Sender: FDA-Public Use
  Company Number: US-GLAXOSMITHKLINE-A1068683A

PATIENT
  Age: 66 Year
  Sex: Female

DRUGS (6)
  1. PLAVIX [Concomitant]
     Active Substance: CLOPIDOGREL BISULFATE
  2. HCTZ [Concomitant]
     Active Substance: HYDROCHLOROTHIAZIDE
  3. CARVEDILOL TABLET [Suspect]
     Active Substance: CARVEDILOL
     Indication: CARDIAC FAILURE CONGESTIVE
     Dosage: 25 MG, BID
     Route: 048
     Dates: start: 20140318, end: 20140401
  4. ENALAPRIL [Concomitant]
     Active Substance: ENALAPRIL
  5. SPIRONOLACTONE. [Concomitant]
     Active Substance: SPIRONOLACTONE
  6. CARVEDILOL TABLET [Suspect]
     Active Substance: CARVEDILOL
     Indication: STENT PLACEMENT
     Dosage: 25 MG, BID
     Route: 048
     Dates: start: 2014

REACTIONS (4)
  - Chest discomfort [Unknown]
  - Chest discomfort [Recovering/Resolving]
  - Blood pressure increased [Unknown]
  - Throat irritation [Unknown]

NARRATIVE: CASE EVENT DATE: 20140320
